FAERS Safety Report 7596867-9 (Version None)
Quarter: 2011Q3

REPORT INFORMATION
  Report Type: 
  Country: None (occurrence: None)
  Receive Date: 20110708
  Receipt Date: 20110701
  Transmission Date: 20111222
  Serious: Yes (Other)
  Sender: FDA-Public Use
  Company Number: FR-PFIZER INC-2011147356

PATIENT
  Age: 46 Year
  Sex: Female

DRUGS (5)
  1. VALACYCLOVIR HYDROCHLORIDE [Concomitant]
     Dosage: UNK
     Route: 048
     Dates: start: 20110411, end: 20110421
  2. CYCLOPHOSPHAMIDE [Suspect]
     Dosage: UNK
     Route: 042
     Dates: start: 20110411, end: 20110411
  3. FLUOROURACIL [Suspect]
     Dosage: UNK
     Route: 042
     Dates: start: 20110411, end: 20110411
  4. EPIRUBICIN HYDROCHLORIDE [Suspect]
     Dosage: UNK
     Route: 042
     Dates: start: 20110411, end: 20110411
  5. LEVOTHYROXINE SODIUM [Concomitant]

REACTIONS (1)
  - CYTOLYTIC HEPATITIS [None]
